FAERS Safety Report 9129819 (Version 1)
Quarter: 2013Q1

REPORT INFORMATION
  Report Type: Report from Study
  Country: BR (occurrence: BR)
  Receive Date: 20130125
  Receipt Date: 20130125
  Transmission Date: 20140127
  Serious: Yes (Hospitalization, Other)
  Sender: FDA-Public Use
  Company Number: BR-ROCHE-729382

PATIENT
  Age: 48 None
  Sex: Female
  Weight: 65.5 kg

DRUGS (14)
  1. MABTHERA [Suspect]
     Indication: RHEUMATOID ARTHRITIS
     Dosage: FIRST CYCLE:01/APR/2010 AND 01/MAY/2010
     Route: 042
  2. MABTHERA [Suspect]
     Dosage: SECOND CYLCYE:04/APR/2011 AND 19/APR/2011
     Route: 042
  3. MABTHERA [Suspect]
     Dosage: THIRD CYCLE:09/NOV/2011 AND 23/NOV/2011
     Route: 042
  4. METICORTEN [Concomitant]
     Indication: PREMEDICATION
     Route: 065
  5. METICORTEN [Concomitant]
     Route: 065
  6. AZULFIN [Concomitant]
     Route: 065
  7. OMEPRAZOLE [Concomitant]
     Route: 065
  8. CELESTAMINE [Concomitant]
     Indication: PREMEDICATION
     Route: 065
  9. ACETAMINOPHEN [Concomitant]
     Indication: PREMEDICATION
     Route: 065
  10. METHYLDOPA [Concomitant]
     Dosage: DRUG REPORTED AS METILCORD
     Route: 065
  11. ATENOLOL [Concomitant]
     Route: 065
  12. FOLIC ACID [Concomitant]
  13. RIVOTRIL [Concomitant]
     Route: 065
  14. SIMVASTATIN [Concomitant]
     Route: 065

REACTIONS (9)
  - Limb operation [Recovered/Resolved]
  - Abscess limb [Unknown]
  - Fistula [Recovering/Resolving]
  - Immunodeficiency [Recovered/Resolved]
  - Local swelling [Not Recovered/Not Resolved]
  - Spinal pain [Not Recovered/Not Resolved]
  - Influenza [Not Recovered/Not Resolved]
  - Bacterial infection [Not Recovered/Not Resolved]
  - Hypertension [Unknown]
